FAERS Safety Report 5046282-7 (Version None)
Quarter: 2006Q3

REPORT INFORMATION
  Report Type: 
  Country: None (occurrence: None)
  Receive Date: 20060710
  Receipt Date: 20060629
  Transmission Date: 20061208
  Serious: Yes (Hospitalization)
  Sender: FDA-Public Use
  Company Number: US-JNJFOC-20060700311

PATIENT
  Sex: Female
  Weight: 60.78 kg

DRUGS (2)
  1. REMICADE [Suspect]
     Indication: CROHN'S DISEASE
  2. 6-MP [Concomitant]
     Dosage: PRIOR USE AND LESS THAN 3 MONTHS

REACTIONS (2)
  - TUBERCULOSIS [None]
  - WHITE BLOOD CELL COUNT DECREASED [None]
